FAERS Safety Report 13478913 (Version 1)
Quarter: 2017Q2

REPORT INFORMATION
  Report Type: Spontaneous
  Country: CN (occurrence: CN)
  Receive Date: 20170425
  Receipt Date: 20170425
  Transmission Date: 20170830
  Serious: Yes (Other)
  Sender: FDA-Public Use
  Company Number: CN-ASTRAZENECA-2017SE42615

PATIENT
  Age: 28253 Day
  Sex: Female
  Weight: 45 kg

DRUGS (2)
  1. ROSUVASTATIN. [Suspect]
     Active Substance: ROSUVASTATIN
     Indication: LIPIDS ABNORMAL
     Route: 048
     Dates: start: 20160520, end: 20160524
  2. ROSUVASTATIN. [Suspect]
     Active Substance: ROSUVASTATIN
     Indication: PROPHYLAXIS
     Route: 048
     Dates: start: 20160520, end: 20160524

REACTIONS (1)
  - Renal failure [Not Recovered/Not Resolved]

NARRATIVE: CASE EVENT DATE: 20160524
